FAERS Safety Report 24625021 (Version 1)
Quarter: 2024Q4

REPORT INFORMATION
  Report Type: Spontaneous
  Country: KR (occurrence: KR)
  Receive Date: 20241115
  Receipt Date: 20241115
  Transmission Date: 20250115
  Serious: No
  Sender: PFIZER
  Company Number: KR-PFIZER INC-202400294924

PATIENT
  Age: 12 Year
  Sex: Male

DRUGS (2)
  1. GENOTROPIN [Suspect]
     Active Substance: SOMATROPIN
     Dosage: 5.3IU, 3 TIMES WEEKLY; 4IU AT 4 TIMES WEEKLY (TOTAL OF 7 TIMES PER WEEK)
     Dates: start: 202209
  2. GENOTROPIN [Suspect]
     Active Substance: SOMATROPIN
     Dosage: 5.3IU, 3 TIMES WEEKLY; 4IU AT 4 TIMES WEEKLY (TOTAL OF 7 TIMES PER WEEK)
     Dates: start: 202209

REACTIONS (4)
  - Device use issue [Unknown]
  - Device information output issue [Unknown]
  - Device leakage [Unknown]
  - Device occlusion [Unknown]
